FAERS Safety Report 9854068 (Version 2)
Quarter: 2014Q1

REPORT INFORMATION
  Report Type: Report from Study
  Country: JP (occurrence: JP)
  Receive Date: 20140129
  Receipt Date: 20140318
  Transmission Date: 20141002
  Serious: Yes (Other)
  Sender: FDA-Public Use
  Company Number: JP-TAKEDA-2014TUS000612

PATIENT
  Sex: 0

DRUGS (12)
  1. FEBURIC [Suspect]
     Indication: GOUT
     Dosage: 20 MG, QD
     Route: 048
     Dates: start: 20121205, end: 20130108
  2. FEBURIC [Suspect]
     Indication: HYPERURICAEMIA
     Dosage: 40 MG, QD
     Route: 048
     Dates: start: 20130109
  3. UNISIA [Concomitant]
     Indication: HYPERTENSION
     Dosage: 1 DF, QD
     Route: 048
     Dates: start: 20110115, end: 20130331
  4. ALDACTONE A [Concomitant]
     Indication: CARDIAC FAILURE CHRONIC
     Dosage: 50 MG, QD
     Route: 048
     Dates: start: 20100928
  5. LASIX                              /00032601/ [Concomitant]
     Indication: CARDIAC FAILURE CHRONIC
     Dosage: 40 MG, QD
     Route: 048
     Dates: start: 20100928, end: 20121218
  6. LASIX                              /00032601/ [Concomitant]
     Dosage: 40MG, QD
     Route: 048
     Dates: start: 20130401, end: 20130512
  7. LASIX                              /00032601/ [Concomitant]
     Dosage: 60 MG. QD
     Route: 048
     Dates: start: 20130513, end: 20130929
  8. LASIX                              /00032601/ [Concomitant]
     Dosage: 80 MG, QD
     Route: 048
     Dates: start: 20130930
  9. LUPRAC [Concomitant]
     Indication: CARDIAC FAILURE CHRONIC
     Dosage: 4 MG, QD
     Route: 048
     Dates: start: 20121219, end: 20130108
  10. LUPRAC [Concomitant]
     Dosage: 8 MG, QD
     Route: 048
     Dates: start: 20130109, end: 20130331
  11. BLOPRESS [Concomitant]
     Indication: HYPERTENSION
     Dosage: 8 MG, QD
     Route: 048
     Dates: start: 20130401
  12. ARTIST [Concomitant]
     Indication: CARDIAC FAILURE CHRONIC
     Dosage: 2.5 MG, QD
     Route: 048
     Dates: start: 20130401

REACTIONS (5)
  - Cardiac failure chronic [Recovering/Resolving]
  - Gastroenteritis [Recovered/Resolved]
  - Gastritis [Recovered/Resolved]
  - Gouty arthritis [Unknown]
  - Gouty arthritis [Unknown]
